FAERS Safety Report 18277918 (Version 1)
Quarter: 2020Q3

REPORT INFORMATION
  Report Type: Spontaneous
  Country: JP (occurrence: JP)
  Receive Date: 20200917
  Receipt Date: 20200917
  Transmission Date: 20201103
  Serious: Yes (Hospitalization)
  Sender: FDA-Public Use
  Company Number: JP-TEVA-2020-JP-1829561

PATIENT
  Age: 78 Year
  Sex: Male

DRUGS (7)
  1. AZACYTIDINE [Suspect]
     Active Substance: AZACITIDINE
     Indication: ACUTE MYELOID LEUKAEMIA
     Route: 065
  2. FLUCONAZOLE. [Concomitant]
     Active Substance: FLUCONAZOLE
     Indication: PRODUCT USED FOR UNKNOWN INDICATION
     Route: 065
  3. INTEBAN SP [Suspect]
     Active Substance: INDOMETHACIN
     Indication: ORAL PAIN
     Dosage: MOUTHWASH USED AS 10ML ONCE BEFORE MEALS (30 SECONDS MOUTHWASH AND SPIT OUT) TO CONTROL PAIN; THE...
     Route: 002
  4. PREDNISOLONE. [Suspect]
     Active Substance: PREDNISOLONE
     Indication: ACUTE MYELOID LEUKAEMIA
     Route: 065
  5. DEXAMETHASONE. [Suspect]
     Active Substance: DEXAMETHASONE
     Indication: ORAL PAIN
     Route: 002
  6. ETHYL AMINO BENZOATE [Suspect]
     Active Substance: BENZOCAINE
     Indication: ORAL PAIN
     Route: 065
  7. LEVOFLOXACIN. [Concomitant]
     Active Substance: LEVOFLOXACIN
     Indication: PRODUCT USED FOR UNKNOWN INDICATION
     Route: 065

REACTIONS (6)
  - Oral pain [Recovering/Resolving]
  - Drug ineffective [Unknown]
  - Hypophagia [Recovering/Resolving]
  - Stomatitis [Recovering/Resolving]
  - Off label use [Unknown]
  - Soft tissue disorder [Recovering/Resolving]
